FAERS Safety Report 6741074-2 (Version None)
Quarter: 2010Q2

REPORT INFORMATION
  Report Type: 
  Country: None (occurrence: None)
  Receive Date: 20100525
  Receipt Date: 20100525
  Transmission Date: 20101027
  Serious: Yes (Death, Life-Threatening, Hospitalization)
  Sender: FDA-Public Use
  Company Number: None

PATIENT
  Age: 76 Year
  Sex: Female
  Weight: 99.7913 kg

DRUGS (1)
  1. ALLOPURINOL [Suspect]
     Indication: GOUT
     Dosage: 300 MG DAILY HEMODIALYSI
     Route: 010
     Dates: start: 20090505, end: 20090611

REACTIONS (4)
  - DELIRIUM [None]
  - PRURITUS [None]
  - PYREXIA [None]
  - URTICARIA [None]
